FAERS Safety Report 8175991-6 (Version None)
Quarter: 2012Q1

REPORT INFORMATION
  Report Type: 
  Country: None (occurrence: None)
  Receive Date: 20120301
  Receipt Date: 20120224
  Transmission Date: 20120608
  Serious: No
  Sender: FDA-Public Use
  Company Number: US-PFIZER INC-2012051203

PATIENT
  Sex: Female

DRUGS (4)
  1. ACETYLSALICYLIC ACID SRT [Suspect]
     Dosage: UNK
     Route: 065
  2. IBUPROFEN [Suspect]
     Dosage: UNK
     Route: 065
  3. NOROXIN [Suspect]
     Dosage: UNK
     Route: 065
  4. LORTAB [Suspect]
     Dosage: UNK
     Route: 065

REACTIONS (1)
  - DRUG HYPERSENSITIVITY [None]
